FAERS Safety Report 23355220 (Version 2)
Quarter: 2024Q1

REPORT INFORMATION
  Report Type: Spontaneous
  Country: BR (occurrence: BR)
  Receive Date: 20240102
  Receipt Date: 20240108
  Transmission Date: 20240410
  Serious: Yes (Other)
  Sender: FDA-Public Use
  Company Number: BR-JNJFOC-20231275573

PATIENT

DRUGS (1)
  1. NICORETTE WHITE ICE MINT [Suspect]
     Active Substance: NICOTINE
     Indication: Smoking cessation therapy
     Dosage: UNK
     Route: 065

REACTIONS (2)
  - Foreign body in throat [Unknown]
  - Product taste abnormal [Unknown]
